FAERS Safety Report 18572531 (Version 1)
Quarter: 2020Q4

REPORT INFORMATION
  Report Type: Spontaneous
  Country: CN (occurrence: CN)
  Receive Date: 20201203
  Receipt Date: 20201203
  Transmission Date: 20210114
  Serious: Yes (Hospitalization)
  Sender: FDA-Public Use
  Company Number: CN-ELI_LILLY_AND_COMPANY-CN202011010662

PATIENT
  Sex: Female
  Weight: 46.5 kg

DRUGS (5)
  1. CYMBALTA [Suspect]
     Active Substance: DULOXETINE HYDROCHLORIDE
     Indication: GENERALISED ANXIETY DISORDER
     Dosage: 30 MG, DAILY
     Route: 048
     Dates: start: 20201005, end: 20201011
  2. CYMBALTA [Suspect]
     Active Substance: DULOXETINE HYDROCHLORIDE
     Dosage: 60 MG, DAILY
     Route: 048
     Dates: start: 20201012, end: 20201105
  3. REMERON [Suspect]
     Active Substance: MIRTAZAPINE
     Indication: GENERALISED ANXIETY DISORDER
     Dosage: 7.5 MG, DAILY
     Route: 048
     Dates: start: 20201005, end: 20201011
  4. REMERON [Suspect]
     Active Substance: MIRTAZAPINE
     Dosage: 15 MG, DAILY
     Route: 048
     Dates: start: 20201012, end: 20201105
  5. LORAZEPAM. [Suspect]
     Active Substance: LORAZEPAM
     Indication: GENERALISED ANXIETY DISORDER
     Dosage: 0.25 MG, TID
     Route: 048
     Dates: start: 20201005, end: 20201105

REACTIONS (1)
  - Liver function test abnormal [Recovered/Resolved]
